FAERS Safety Report 9539038 (Version 1)
Quarter: 2013Q2

REPORT INFORMATION
  Report Type: Spontaneous
  Country: US (occurrence: None)
  Receive Date: 20130521
  Receipt Date: 20130521
  Transmission Date: 20140414
  Serious: Yes (Other)
  Sender: FDA-Public Use
  Company Number: 1000042890

PATIENT
  Age: 78 Year
  Sex: Male

DRUGS (5)
  1. TUDORZA PRESSAIR [Suspect]
     Indication: CHRONIC OBSTRUCTIVE PULMONARY DISEASE
     Dosage: 400 MCG (400 MCG, 1 IN 1 D), RESPIRATORY (INHALATION)
     Route: 055
     Dates: start: 20130215
  2. TUDORZA PRESSAIR [Suspect]
     Indication: EMPHYSEMA
     Dosage: 400 MCG (400 MCG, 1 IN 1 D), RESPIRATORY (INHALATION)
     Route: 055
     Dates: start: 20130215
  3. FLOMAX (TAMSULOSIN) (TAMSULOSIN) [Concomitant]
  4. ADVAIR (SERETIDE) (SERETIDE) [Concomitant]
  5. ALBUTEROL (ALBUTEROL) (ALBUTEROL) [Concomitant]

REACTIONS (1)
  - Urine flow decreased [None]
